FAERS Safety Report 19402246 (Version 1)
Quarter: 2021Q2

REPORT INFORMATION
  Report Type: Spontaneous
  Country: US (occurrence: US)
  Receive Date: 20210610
  Receipt Date: 20210610
  Transmission Date: 20210717
  Serious: No
  Sender: FDA-Public Use
  Company Number: US-COLLEGIUM PHARMACEUTICAL, INC.-2021CGM00055

PATIENT
  Age: 5 Decade
  Sex: Male

DRUGS (2)
  1. UNSPECIFIED IR (IMMEDIATE RELEASE) OPIOID [Concomitant]
  2. XTAMPZA ER [Suspect]
     Active Substance: OXYCODONE
     Indication: PAIN
     Dosage: 13.5 MG, 2X/DAY
     Route: 048
     Dates: start: 202011

REACTIONS (2)
  - Rash [Recovering/Resolving]
  - Headache [Recovering/Resolving]
